FAERS Safety Report 8384228-4 (Version None)
Quarter: 2012Q2

REPORT INFORMATION
  Report Type: 
  Country: None (occurrence: None)
  Receive Date: 20120524
  Receipt Date: 20120521
  Transmission Date: 20120825
  Serious: Yes (Death, Hospitalization)
  Sender: FDA-Public Use
  Company Number: US-B.I. PHARMACEUTICALS,INC./RIDGEFIELD-2012-BP-10941BP

PATIENT
  Age: 82 Year
  Sex: Male

DRUGS (5)
  1. LEVOTHYROXINE SODIUM [Concomitant]
  2. NORVASC [Concomitant]
  3. MICARDIS [Concomitant]
     Dosage: 80 MG
  4. SPIRONOLACTONE [Concomitant]
     Dosage: 25 MG
  5. PRADAXA [Suspect]
     Indication: ATRIAL FIBRILLATION
     Dosage: 300 MG
     Route: 048
     Dates: start: 20120322

REACTIONS (5)
  - RENAL FAILURE [None]
  - HYPERTROPHIC CARDIOMYOPATHY [None]
  - SHOCK [None]
  - LARGE INTESTINAL HAEMORRHAGE [None]
  - BLOOD PRESSURE SYSTOLIC DECREASED [None]
